FAERS Safety Report 4416819-7 (Version None)
Quarter: 2004Q2

REPORT INFORMATION
  Report Type: 
  Country: None (occurrence: None)
  Receive Date: 20040628
  Receipt Date: 20040513
  Transmission Date: 20050107
  Serious: No
  Sender: FDA-Public Use
  Company Number: USA-2004-0015134

PATIENT
  Sex: Female

DRUGS (1)
  1. SPECTRACEF [Suspect]

REACTIONS (1)
  - DIARRHOEA [None]
